FAERS Safety Report 8915638 (Version 2)
Quarter: 2013Q3

REPORT INFORMATION
  Report Type: Report from Study
  Country: ZW (occurrence: ZW)
  Receive Date: 20121119
  Receipt Date: 20130719
  Transmission Date: 20140515
  Serious: Yes (Death)
  Sender: FDA-Public Use
  Company Number: ZW-ABBOTT-12P-190-1009363-00

PATIENT
  Age: 42 Year
  Sex: Male

DRUGS (3)
  1. ALUVIA [Suspect]
     Indication: HIV INFECTION
     Route: 048
     Dates: start: 20101221
  2. COTRIMOXAZOLE [Concomitant]
     Indication: PRODUCT USED FOR UNKNOWN INDICATION
     Dates: start: 20051215
  3. HCT [Concomitant]
     Indication: HYPERTENSION
     Dates: start: 20100615

REACTIONS (4)
  - Death [Fatal]
  - Lymphadenopathy [Fatal]
  - Anogenital warts [Fatal]
  - Pelvic mass [Fatal]
